FAERS Safety Report 7688558-0 (Version None)
Quarter: 2011Q3

REPORT INFORMATION
  Report Type: 
  Country: None (occurrence: None)
  Receive Date: 20110817
  Receipt Date: 20110817
  Transmission Date: 20111222
  Serious: Yes (Other)
  Sender: FDA-Public Use
  Company Number: None

PATIENT
  Age: 73 Year
  Sex: Female
  Weight: 82.553 kg

DRUGS (1)
  1. CARVEDILOL [Suspect]
     Indication: DRUG THERAPY
     Dosage: 1 TABLET TWICE A DAY
     Dates: start: 20080201, end: 20080701

REACTIONS (8)
  - SKIN DISCOLOURATION [None]
  - HEADACHE [None]
  - FEELING ABNORMAL [None]
  - DRUG HYPERSENSITIVITY [None]
  - UNEVALUABLE EVENT [None]
  - OEDEMA PERIPHERAL [None]
  - DYSPNOEA [None]
  - PRODUCT SUBSTITUTION ISSUE [None]
